FAERS Safety Report 12631117 (Version 2)
Quarter: 2016Q3

REPORT INFORMATION
  Report Type: Spontaneous
  Country: US (occurrence: US)
  Receive Date: 20160808
  Receipt Date: 20160808
  Transmission Date: 20161109
  Serious: No
  Sender: FDA-Public Use
  Company Number: US-BEH-2015052325

PATIENT
  Sex: Male
  Weight: 119 kg

DRUGS (21)
  1. RANITIDINE. [Concomitant]
     Active Substance: RANITIDINE
  2. ATORVASTATIN [Concomitant]
     Active Substance: ATORVASTATIN
  3. CARVEDILOL. [Concomitant]
     Active Substance: CARVEDILOL
  4. ONE A DAY [Concomitant]
  5. ACETAMINOPHEN. [Concomitant]
     Active Substance: ACETAMINOPHEN
  6. CLOPIDOGREL [Concomitant]
     Active Substance: CLOPIDOGREL BISULFATE
  7. DIPHENHYDRAMINE. [Concomitant]
     Active Substance: DIPHENHYDRAMINE
  8. HIZENTRA [Suspect]
     Active Substance: HUMAN IMMUNOGLOBULIN G
     Route: 058
  9. PAROXETINE. [Concomitant]
     Active Substance: PAROXETINE
  10. EPIPEN [Concomitant]
     Active Substance: EPINEPHRINE
     Indication: ANAPHYLACTIC REACTION
  11. METFORMIN [Concomitant]
     Active Substance: METFORMIN HYDROCHLORIDE
  12. BACTRIM [Concomitant]
     Active Substance: SULFAMETHOXAZOLE\TRIMETHOPRIM
  13. MULTIVITAMIN [Concomitant]
     Active Substance: VITAMINS
  14. ALTACE [Concomitant]
     Active Substance: RAMIPRIL
  15. PREDNISONE. [Concomitant]
     Active Substance: PREDNISONE
  16. METRONIDAZOLE. [Concomitant]
     Active Substance: METRONIDAZOLE
  17. HIZENTRA [Suspect]
     Active Substance: HUMAN IMMUNOGLOBULIN G
     Indication: IMMUNODEFICIENCY COMMON VARIABLE
     Route: 058
  18. RAMIPRIL. [Concomitant]
     Active Substance: RAMIPRIL
  19. BROMOCRIPTINE [Concomitant]
     Active Substance: BROMOCRIPTINE
  20. ASPIRIN. [Concomitant]
     Active Substance: ASPIRIN
  21. FLUVOXAMINE [Concomitant]
     Active Substance: FLUVOXAMINE

REACTIONS (1)
  - Diarrhoea [Unknown]
